FAERS Safety Report 5391893-2 (Version None)
Quarter: 2007Q3

REPORT INFORMATION
  Report Type: 
  Country: None (occurrence: None)
  Receive Date: 20070718
  Receipt Date: 20070706
  Transmission Date: 20080115
  Serious: Yes (Other)
  Sender: FDA-Public Use
  Company Number: AE-707-232

PATIENT
  Sex: Female

DRUGS (1)
  1. LIDODERM [Suspect]

REACTIONS (2)
  - METHAEMOGLOBINAEMIA [None]
  - RESPIRATORY ARREST [None]
